FAERS Safety Report 8791896 (Version 1)
Quarter: 2012Q4

REPORT INFORMATION
  Report Type: 
  Country: FR (occurrence: FR)
  Receive Date: 20120918
  Receipt Date: 20120918
  Transmission Date: 20130627
  Serious: Yes (Hospitalization, Other)
  Sender: FDA-Public Use
  Company Number: FR-SANOFI-AVENTIS-2012SA065403

PATIENT
  Age: 65 Year
  Sex: Female

DRUGS (9)
  1. RIFADINE [Suspect]
     Indication: GONARTHRITIS
     Route: 048
     Dates: start: 20120505, end: 20120529
  2. ZYVOXID [Suspect]
     Indication: GONARTHRITIS
     Route: 042
     Dates: start: 20120505, end: 20120507
  3. ZYVOXID [Suspect]
     Indication: GONARTHRITIS
     Route: 048
     Dates: start: 20120508, end: 20120529
  4. HYDROCHLOROTHIAZIDE/IRBESARTAN [Concomitant]
     Route: 065
  5. AMLODIPINE [Concomitant]
     Route: 065
  6. ROSUVASTATIN CALCIUM [Concomitant]
     Route: 065
  7. INEXIUM [Concomitant]
     Route: 065
  8. PARACETAMOL [Concomitant]
     Route: 065
  9. ACUPAN [Concomitant]
     Route: 065

REACTIONS (4)
  - Lactic acidosis [Recovered/Resolved]
  - Hepatocellular injury [Recovered/Resolved]
  - Asthenia [Recovering/Resolving]
  - Gastrointestinal disorder [Recovered/Resolved]
